FAERS Safety Report 4558686-7 (Version None)
Quarter: 2005Q1

REPORT INFORMATION
  Report Type: 
  Country: None (occurrence: None)
  Receive Date: 20050119
  Receipt Date: 20050106
  Transmission Date: 20050727
  Serious: Yes (Hospitalization)
  Sender: FDA-Public Use
  Company Number: 2005UW00478

PATIENT
  Age: 23 Year
  Sex: Male

DRUGS (7)
  1. SEROQUEL [Suspect]
     Indication: SCHIZOPHRENIA
     Dosage: 600 MG DAILY PO
     Route: 048
     Dates: start: 20041124, end: 20041207
  2. DEPAKOTE [Concomitant]
  3. RISPERDAL [Concomitant]
  4. COGENTIN [Concomitant]
  5. PROZAC [Concomitant]
  6. AMBIEN [Concomitant]
  7. ACETAMINOPHEN [Concomitant]

REACTIONS (5)
  - CONDITION AGGRAVATED [None]
  - INSOMNIA [None]
  - MEDICATION ERROR [None]
  - MUSCLE TIGHTNESS [None]
  - SCHIZOPHRENIA [None]
